FAERS Safety Report 9549474 (Version 2)
Quarter: 2013Q4

REPORT INFORMATION
  Report Type: Spontaneous
  Country: FR (occurrence: None)
  Receive Date: 20130919
  Receipt Date: 20131030
  Transmission Date: 20140711
  Serious: Yes (Hospitalization, Other)
  Sender: FDA-Public Use
  Company Number: VAL_02730_2013

PATIENT
  Age: 35 Year
  Sex: Female

DRUGS (1)
  1. PARLODEL (PARLODEL-BROMOCRIPTINE MESILATE) [Suspect]
     Indication: LACTATION INHIBITION THERAPY
     Dosage: (DF ORAL)
     Dates: start: 20130811, end: 20130814

REACTIONS (7)
  - Acute pulmonary oedema [None]
  - Cardiac failure [None]
  - Congestive cardiomyopathy [None]
  - Left ventricular dysfunction [None]
  - Anaemia [None]
  - Post procedural complication [None]
  - Colonic haematoma [None]
